FAERS Safety Report 21697133 (Version 1)
Quarter: 2022Q4

REPORT INFORMATION
  Report Type: Spontaneous
  Country: FR (occurrence: FR)
  Receive Date: 20221208
  Receipt Date: 20221208
  Transmission Date: 20230112
  Serious: Yes (Death, Other)
  Sender: FDA-Public Use
  Company Number: FR-BAXTER-2022BAX026245

PATIENT
  Age: 79 Year
  Sex: Female

DRUGS (3)
  1. CYCLOPHOSPHAMIDE [Suspect]
     Active Substance: CYCLOPHOSPHAMIDE
     Indication: Product used for unknown indication
     Dosage: 400 MG/DOSE 1 DOSE(S)/WEEK 3 WEEK(S)/CYCLE, TREATMENT LINE 1, DURATION 1.9 MONTHS
     Route: 065
     Dates: end: 20181210
  2. BORTEZOMIB [Suspect]
     Active Substance: BORTEZOMIB
     Indication: Product used for unknown indication
     Dosage: 1.8 MG/DOSE 2 DOSE(S)/WEEK 2 WEEK(S)/CYCLE, TREATMENT LINE 1, DURATION 1.9 MONTHS
     Route: 065
     Dates: end: 20181210
  3. DEXAMETHASONE [Suspect]
     Active Substance: DEXAMETHASONE
     Indication: Product used for unknown indication
     Dosage: 20 MG/DOSE 4 DOSE(S)/WEEK 2 WEEK(S)/CYCLE
     Route: 065
     Dates: end: 20181210

REACTIONS (3)
  - Arrhythmia [Fatal]
  - Primary amyloidosis [Fatal]
  - Atrioventricular block second degree [Fatal]
